FAERS Safety Report 10006379 (Version 1)
Quarter: 2014Q1

REPORT INFORMATION
  Report Type: Spontaneous
  Country: GB (occurrence: GB)
  Receive Date: 20140313
  Receipt Date: 20140313
  Transmission Date: 20141002
  Serious: Yes (Other)
  Sender: FDA-Public Use
  Company Number: GB-PFIZER INC-2014069309

PATIENT
  Sex: Male

DRUGS (2)
  1. IRINOTECAN HCL [Suspect]
     Dosage: UNK
  2. AVASTIN [Suspect]
     Dosage: UNK

REACTIONS (2)
  - Necrotising fasciitis [Unknown]
  - Diarrhoea [Unknown]
